FAERS Safety Report 4448935-8 (Version None)
Quarter: 2004Q3

REPORT INFORMATION
  Report Type: 
  Country: None (occurrence: None)
  Receive Date: 20040909
  Receipt Date: 20040820
  Transmission Date: 20050211
  Serious: Yes (Other)
  Sender: FDA-Public Use
  Company Number: USA040876166

PATIENT
  Age: 57 Year
  Sex: Male

DRUGS (3)
  1. ZYPREXA [Suspect]
     Indication: BIPOLAR DISORDER
     Dosage: 600 MG DAY
  2. NAVANE (TIOTIXINE) [Concomitant]
  3. BENADRYL [Concomitant]

REACTIONS (8)
  - AGITATION [None]
  - DRY MOUTH [None]
  - ELECTROCARDIOGRAM QT PROLONGED [None]
  - HALLUCINATION, AUDITORY [None]
  - OVERDOSE [None]
  - RESTLESSNESS [None]
  - SOMNOLENCE [None]
  - SUICIDE ATTEMPT [None]
